FAERS Safety Report 26192103 (Version 1)
Quarter: 2025Q4

REPORT INFORMATION
  Report Type: Spontaneous
  Country: EU (occurrence: EU)
  Receive Date: 20251223
  Receipt Date: 20251223
  Transmission Date: 20260118
  Serious: Yes (Other)
  Sender: PFIZER
  Company Number: None

PATIENT
  Age: 59 Year
  Sex: Female

DRUGS (6)
  1. LITFULO [Suspect]
     Active Substance: RITLECITINIB TOSYLATE
     Indication: Alopecia areata
     Dosage: 50 MG, 1X/DAY
     Route: 048
     Dates: start: 20241212, end: 202507
  2. OLMESARTAN MEDOXOMIL [Concomitant]
     Active Substance: OLMESARTAN MEDOXOMIL
     Dosage: 10 MG, 1X/DAY
  3. ABSORCOL [Concomitant]
     Dosage: 10 MG, 1X/DAY
  4. PANTOPRAZOLE SODIUM [Concomitant]
     Active Substance: PANTOPRAZOLE SODIUM
     Dosage: 20 MG, 1X/DAY
  5. MAGALDRATE [Concomitant]
     Active Substance: MAGALDRATE
     Dosage: 80 MG, AS NEEDED
  6. DEURSIL [Concomitant]
     Active Substance: URSODIOL
     Dosage: 450 MG 1 CPS/ DIE CYCLIC FOR 2 MONTHS

REACTIONS (1)
  - Leukopenia [Not Recovered/Not Resolved]

NARRATIVE: CASE EVENT DATE: 20250701
